FAERS Safety Report 9714259 (Version 2)
Quarter: 2013Q4

REPORT INFORMATION
  Report Type: Spontaneous
  Country: US (occurrence: US)
  Receive Date: 20131126
  Receipt Date: 20131126
  Transmission Date: 20140711
  Serious: No
  Sender: FDA-Public Use
  Company Number: US-GILEAD-2008-0019108

PATIENT
  Sex: Male

DRUGS (12)
  1. LETAIRIS [Suspect]
     Indication: PULMONARY ARTERIAL HYPERTENSION
     Route: 048
     Dates: start: 20081022
  2. FUROSEMIDE [Concomitant]
  3. METOPROLOL [Concomitant]
  4. AVALIDE [Concomitant]
  5. METFORMIN [Concomitant]
  6. GLIPIZIDE [Concomitant]
  7. GEMFIBROZIL [Concomitant]
  8. SIMVASTATIN [Concomitant]
  9. FLOMAX [Concomitant]
  10. VITAMIN A [Concomitant]
  11. CALCIUM [Concomitant]
  12. MULTIVITAMINS [Concomitant]

REACTIONS (1)
  - Palpitations [Unknown]
